FAERS Safety Report 9612961 (Version 1)
Quarter: 2013Q4

REPORT INFORMATION
  Report Type: Spontaneous
  Country: SE (occurrence: SE)
  Receive Date: 20131010
  Receipt Date: 20131010
  Transmission Date: 20140711
  Serious: Yes (Hospitalization)
  Sender: FDA-Public Use
  Company Number: SE-B.I. PHARMACEUTICALS,INC./RIDGEFIELD-2013-BI-31767SW

PATIENT
  Age: 71 Year
  Sex: Male

DRUGS (3)
  1. PRADAXA [Suspect]
     Dates: start: 201307, end: 20130726
  2. WARAN [Concomitant]
  3. ACE-INHIBITOR [Concomitant]

REACTIONS (3)
  - Dysphagia [Unknown]
  - Diarrhoea [Unknown]
  - Renal failure acute [Unknown]
